FAERS Safety Report 17192411 (Version 3)
Quarter: 2020Q1

REPORT INFORMATION
  Report Type: Spontaneous
  Country: CA (occurrence: CA)
  Receive Date: 20191223
  Receipt Date: 20200220
  Transmission Date: 20200409
  Serious: Yes (Hospitalization, Other)
  Sender: FDA-Public Use
  Company Number: CA-CELLTRION INC.-2019CA027125

PATIENT

DRUGS (5)
  1. INFLECTRA [Suspect]
     Active Substance: INFLIXIMAB-DYYB
     Dosage: 10 MG/KG INDUCTION DOSES THEN EVERY 8 WEEKS
     Route: 042
     Dates: start: 20191121, end: 20191121
  2. INFLECTRA [Suspect]
     Active Substance: INFLIXIMAB-DYYB
     Dosage: 10 MG/KG INDUCTION DOSES THEN EVERY 8 WEEKS
     Route: 042
     Dates: start: 20191101, end: 20191101
  3. PREDNISONE. [Concomitant]
     Active Substance: PREDNISONE
     Indication: COLITIS ULCERATIVE
     Dosage: 50 MG, 1X/DAY (TAPER)
     Route: 048
     Dates: start: 20191020
  4. SOLU-MEDROL [Concomitant]
     Active Substance: METHYLPREDNISOLONE SODIUM SUCCINATE
     Indication: COLITIS ULCERATIVE
     Dosage: 125 MG, DAILY
     Route: 042
     Dates: start: 20191017, end: 20191022
  5. INFLECTRA [Suspect]
     Active Substance: INFLIXIMAB-DYYB
     Indication: COLITIS ULCERATIVE
     Dosage: 10 MG/KG (700MG)INDUCTION DOSES THEN EVERY 8 WEEKS
     Route: 042
     Dates: start: 20191024, end: 20191024

REACTIONS (8)
  - Inappropriate schedule of product administration [Unknown]
  - Colitis ulcerative [Unknown]
  - Therapeutic product effect delayed [Unknown]
  - Malaise [Unknown]
  - Pyrexia [Unknown]
  - Therapy non-responder [Recovering/Resolving]
  - Off label use [Unknown]
  - Incorrect dose administered [Unknown]
